FAERS Safety Report 23034667 (Version 2)
Quarter: 2024Q1

REPORT INFORMATION
  Report Type: Spontaneous
  Country: US (occurrence: US)
  Receive Date: 20231005
  Receipt Date: 20240219
  Transmission Date: 20240410
  Serious: Yes (Other)
  Sender: FDA-Public Use
  Company Number: US-BRISTOL-MYERS SQUIBB COMPANY-2023-141352

PATIENT
  Age: 68 Year
  Sex: Male
  Weight: 109.6 kg

DRUGS (33)
  1. POMALYST [Suspect]
     Active Substance: POMALIDOMIDE
     Indication: Plasma cell myeloma
     Dosage: DAILY FOR 21 DAYS
     Route: 048
     Dates: start: 20230126
  2. POMALYST [Suspect]
     Active Substance: POMALIDOMIDE
     Route: 048
     Dates: start: 20230202
  3. ISATUXIMAB [Concomitant]
     Active Substance: ISATUXIMAB
     Indication: Product used for unknown indication
     Dosage: 100MG/ 5 ML
  4. ASPIRIN [Concomitant]
     Active Substance: ASPIRIN
     Indication: Product used for unknown indication
  5. FISH OIL [Concomitant]
     Active Substance: FISH OIL
     Indication: Product used for unknown indication
  6. MECLIZINE [Concomitant]
     Active Substance: MECLIZINE HYDROCHLORIDE
     Indication: Product used for unknown indication
  7. VITAMIN D3 [Concomitant]
     Active Substance: CHOLECALCIFEROL
     Indication: Product used for unknown indication
  8. DIPHENHYDRAMINE [Concomitant]
     Active Substance: DIPHENHYDRAMINE
  9. ACETAMINOPHEN [Concomitant]
     Active Substance: ACETAMINOPHEN
  10. FOLIC ACID [Concomitant]
     Active Substance: FOLIC ACID
  11. VITAMIN B12 [Concomitant]
     Active Substance: CYANOCOBALAMIN
  12. LUTEIN + [Concomitant]
  13. ZINC [Concomitant]
     Active Substance: PYRITHIONE ZINC\ZINC\ZINC CHLORIDE
  14. VITAMINS [Concomitant]
     Active Substance: VITAMINS
  15. VITAMIN D3 [Concomitant]
     Active Substance: CHOLECALCIFEROL
  16. BRIVIACT [Concomitant]
     Active Substance: BRIVARACETAM
  17. OFLOXACIN [Concomitant]
     Active Substance: OFLOXACIN
     Dosage: OPHTHALMIC SOLUTION
     Route: 047
  18. PREDNISOLONE [Concomitant]
     Active Substance: PREDNISOLONE
     Dosage: OPHTHALMIC
     Route: 047
  19. KETOROLAC [Concomitant]
     Active Substance: KETOROLAC TROMETHAMINE
     Dosage: OPHTHALMIC SOLUTION
     Route: 047
  20. TAMSULOSIN [Concomitant]
     Active Substance: TAMSULOSIN
  21. ATORVASTATIN [Concomitant]
     Active Substance: ATORVASTATIN
  22. CLOPIDOGREL [Concomitant]
     Active Substance: CLOPIDOGREL BISULFATE
  23. VAZALORE [Concomitant]
     Active Substance: ASPIRIN
  24. METOPROLOL TARTRATE [Concomitant]
     Active Substance: METOPROLOL TARTRATE
  25. POTASSIUM [Concomitant]
     Active Substance: POTASSIUM
  26. DEXAMETHASONE [Concomitant]
     Active Substance: DEXAMETHASONE
  27. FUROSEMIDE [Concomitant]
     Active Substance: FUROSEMIDE
  28. ACYCLOVIR [Concomitant]
     Active Substance: ACYCLOVIR
  29. CITALOPRAM [Concomitant]
     Active Substance: CITALOPRAM HYDROBROMIDE
  30. HYDROCODONE [Concomitant]
     Active Substance: HYDROCODONE
  31. ALLOPURINOL [Concomitant]
     Active Substance: ALLOPURINOL
     Dosage: 5/325 MG
  32. OMEPRAZOLE [Concomitant]
     Active Substance: OMEPRAZOLE
  33. NIFEDIPINE [Concomitant]
     Active Substance: NIFEDIPINE

REACTIONS (5)
  - Peripheral swelling [Unknown]
  - Anaemia [Unknown]
  - Fatigue [Unknown]
  - Diarrhoea [Unknown]
  - Cataract [Unknown]

NARRATIVE: CASE EVENT DATE: 20231003
